FAERS Safety Report 8329478-8 (Version None)
Quarter: 2012Q2

REPORT INFORMATION
  Report Type: 
  Country: None (occurrence: None)
  Receive Date: 20120502
  Receipt Date: 20120419
  Transmission Date: 20120825
  Serious: Yes (Other)
  Sender: FDA-Public Use
  Company Number: US-JNJFOC-20120409156

PATIENT
  Sex: Female
  Weight: 56.7 kg

DRUGS (6)
  1. HYDROCODONE [Concomitant]
     Indication: HEADACHE
     Route: 048
     Dates: start: 20100101
  2. LEVOFLOXACIN [Concomitant]
     Indication: SINUSITIS
     Route: 048
     Dates: start: 20120410, end: 20120416
  3. ELMIRON [Suspect]
     Indication: CYSTITIS INTERSTITIAL
     Route: 048
     Dates: start: 20100101
  4. NASONEX [Concomitant]
     Indication: SINUSITIS
     Route: 045
     Dates: start: 20120410, end: 20120418
  5. CYMBALTA [Concomitant]
     Indication: PRODUCT USED FOR UNKNOWN INDICATION
     Route: 048
     Dates: start: 20110101
  6. TRAMADOL HCL [Concomitant]
     Indication: HEADACHE
     Route: 048
     Dates: start: 20100101

REACTIONS (6)
  - SINUSITIS [None]
  - TREATMENT NONCOMPLIANCE [None]
  - HYSTERECTOMY [None]
  - HEADACHE [None]
  - ADVERSE EVENT [None]
  - INCORRECT DOSE ADMINISTERED [None]
